FAERS Safety Report 5129954-5 (Version None)
Quarter: 2006Q4

REPORT INFORMATION
  Report Type: 
  Country: None (occurrence: None)
  Receive Date: 20061013
  Receipt Date: 20060929
  Transmission Date: 20070319
  Serious: Yes (Life-Threatening, Hospitalization)
  Sender: FDA-Public Use
  Company Number: ENT 2006-0135

PATIENT
  Age: 75 Year
  Sex: Male

DRUGS (1)
  1. COMTESS (ENTACAPONE) [Suspect]
     Indication: PARKINSON'S DISEASE
     Dosage: ORAL
     Route: 048

REACTIONS (2)
  - RENAL FAILURE [None]
  - RHABDOMYOLYSIS [None]
